FAERS Safety Report 7499542-4 (Version None)
Quarter: 2011Q2

REPORT INFORMATION
  Report Type: 
  Country: None (occurrence: None)
  Receive Date: 20110524
  Receipt Date: 20110523
  Transmission Date: 20111010
  Serious: Yes (Death)
  Sender: FDA-Public Use
  Company Number: PHFR2011GB03189

PATIENT
  Sex: Male

DRUGS (1)
  1. CLOZARIL [Suspect]
     Indication: SCHIZOPHRENIA
     Route: 048
     Dates: start: 20040720

REACTIONS (5)
  - WEIGHT DECREASED [None]
  - PLEURAL EFFUSION [None]
  - DYSPNOEA [None]
  - LUNG NEOPLASM MALIGNANT [None]
  - ANTIPSYCHOTIC DRUG LEVEL INCREASED [None]
